FAERS Safety Report 8417218-3 (Version None)
Quarter: 2012Q2

REPORT INFORMATION
  Report Type: 
  Country: None (occurrence: None)
  Receive Date: 20120606
  Receipt Date: 20120525
  Transmission Date: 20120825
  Serious: No
  Sender: FDA-Public Use
  Company Number: JP-UCBSA-058657

PATIENT
  Age: 39 Year
  Sex: Female

DRUGS (2)
  1. KEPPRA [Suspect]
     Indication: COMPLEX PARTIAL SEIZURES
     Route: 048
     Dates: start: 20110701
  2. ZONISAMIDE [Concomitant]
     Route: 048

REACTIONS (1)
  - GRANULOCYTOPENIA [None]
